FAERS Safety Report 9137659 (Version 1)
Quarter: 2013Q1

REPORT INFORMATION
  Report Type: Spontaneous
  Country: BR (occurrence: BR)
  Receive Date: 20130304
  Receipt Date: 20130304
  Transmission Date: 20140127
  Serious: Yes (Hospitalization)
  Sender: FDA-Public Use
  Company Number: BR-ASTRAZENECA-2013SE12742

PATIENT
  Age: 59 Year
  Sex: Female
  Weight: 69 kg

DRUGS (15)
  1. NEXIUM [Suspect]
     Indication: OESOPHAGITIS
     Route: 048
     Dates: end: 2011
  2. NEXIUM [Suspect]
     Indication: ULCER
     Route: 048
     Dates: end: 2011
  3. NEXIUM [Suspect]
     Indication: OESOPHAGITIS
     Route: 048
     Dates: start: 201302
  4. NEXIUM [Suspect]
     Indication: ULCER
     Route: 048
     Dates: start: 201302
  5. OMEPRAZOLE [Suspect]
     Indication: OESOPHAGITIS
     Route: 048
     Dates: start: 2011, end: 201302
  6. OMEPRAZOLE [Suspect]
     Indication: ULCER
     Route: 048
     Dates: start: 2011, end: 201302
  7. CRESTOR [Suspect]
     Indication: BLOOD CHOLESTEROL INCREASED
     Route: 048
     Dates: end: 2011
  8. CRESTOR [Suspect]
     Indication: BLOOD TRIGLYCERIDES INCREASED
     Route: 048
     Dates: end: 2011
  9. CRESTOR [Suspect]
     Indication: BLOOD CHOLESTEROL INCREASED
     Route: 048
     Dates: start: 201302
  10. CRESTOR [Suspect]
     Indication: BLOOD TRIGLYCERIDES INCREASED
     Route: 048
     Dates: start: 201302
  11. SIMVASTATIN [Suspect]
     Indication: BLOOD CHOLESTEROL INCREASED
     Route: 048
     Dates: start: 2011, end: 201302
  12. SIMVASTATIN [Suspect]
     Indication: BLOOD TRIGLYCERIDES INCREASED
     Route: 048
     Dates: start: 2011, end: 201302
  13. GLIFAGE XR [Concomitant]
     Indication: DIABETES MELLITUS
     Route: 048
  14. VITAMIN D [Concomitant]
     Route: 048
  15. ALPRAZ [Concomitant]
     Indication: INSOMNIA
     Route: 048
     Dates: start: 2011

REACTIONS (9)
  - Breast cancer [Recovered/Resolved]
  - Hearing impaired [Unknown]
  - Oesophagitis [Recovered/Resolved]
  - Osteoarthropathy [Unknown]
  - Ulcer [Recovered/Resolved]
  - Insomnia [Not Recovered/Not Resolved]
  - Blood cholesterol increased [Recovered/Resolved]
  - Blood triglycerides increased [Recovered/Resolved]
  - Drug ineffective [Unknown]
